FAERS Safety Report 6947472-6 (Version None)
Quarter: 2010Q3

REPORT INFORMATION
  Report Type: 
  Country: None (occurrence: None)
  Receive Date: 20100825
  Receipt Date: 20100816
  Transmission Date: 20110219
  Serious: Yes (Hospitalization)
  Sender: FDA-Public Use
  Company Number: 1000015746

PATIENT
  Age: 40 Year
  Sex: Female

DRUGS (3)
  1. CELEXA [Suspect]
     Indication: MULTIPLE SCLEROSIS
     Dosage: ORAL
     Route: 048
  2. AVONEX [Suspect]
     Indication: MULTIPLE SCLEROSIS
     Dosage: INTRAMUSCULAR, 30 MCG, WEEKLY, INTRAMUSCULAR
     Route: 030
  3. XANAX [Suspect]

REACTIONS (3)
  - HAEMATOMA [None]
  - MULTIPLE DRUG OVERDOSE ACCIDENTAL [None]
  - MULTIPLE SCLEROSIS RELAPSE [None]
